FAERS Safety Report 25061525 (Version 3)
Quarter: 2025Q2

REPORT INFORMATION
  Report Type: Spontaneous
  Country: US (occurrence: US)
  Receive Date: 20250311
  Receipt Date: 20250416
  Transmission Date: 20250717
  Serious: Yes (Other)
  Sender: ABBVIE
  Company Number: US-TEVA-VS-3304105

PATIENT
  Age: 82 Year
  Sex: Male

DRUGS (1)
  1. TESTOSTERONE [Suspect]
     Active Substance: TESTOSTERONE
     Indication: Hypogonadism
     Dosage: DOSE -EVERY OTHER DAY
     Route: 065
     Dates: end: 202502

REACTIONS (6)
  - Spinal operation [Unknown]
  - Application site rash [Recovered/Resolved]
  - Product quality issue [Unknown]
  - Application site erythema [Unknown]
  - Application site pruritus [Unknown]
  - Drug eruption [Unknown]

NARRATIVE: CASE EVENT DATE: 20250201
